FAERS Safety Report 8806538 (Version 1)
Quarter: 2012Q4

REPORT INFORMATION
  Report Type: 
  Country: US (occurrence: US)
  Receive Date: 20120925
  Receipt Date: 20120925
  Transmission Date: 20130627
  Serious: Yes (Other)
  Sender: FDA-Public Use
  Company Number: US-ELI_LILLY_AND_COMPANY-US201209004344

PATIENT
  Sex: Male

DRUGS (2)
  1. ADCIRCA [Suspect]
  2. TRACLEER [Concomitant]
     Indication: PULMONARY ARTERIAL HYPERTENSION
     Dosage: UNK
     Route: 048
     Dates: start: 20120622, end: 20120727

REACTIONS (6)
  - Deafness [Unknown]
  - Visual acuity reduced [Unknown]
  - Visual brightness [Unknown]
  - Alopecia [Unknown]
  - Vision blurred [Unknown]
  - Anaemia [Unknown]
